FAERS Safety Report 25148415 (Version 2)
Quarter: 2025Q2

REPORT INFORMATION
  Report Type: Spontaneous
  Country: JP (occurrence: JP)
  Receive Date: 20250402
  Receipt Date: 20250417
  Transmission Date: 20250716
  Serious: Yes (Other)
  Sender: ORGANON
  Company Number: JP-ORGANON-O2503JPN002845

PATIENT
  Age: 8 Decade
  Sex: Male
  Weight: 60 kg

DRUGS (3)
  1. ZETIA [Suspect]
     Active Substance: EZETIMIBE
     Route: 048
  2. SACUBITRIL\VALSARTAN [Concomitant]
     Active Substance: SACUBITRIL\VALSARTAN
     Route: 048
  3. AMLODIPINE BESYLATE [Concomitant]
     Active Substance: AMLODIPINE BESYLATE
     Route: 048

REACTIONS (7)
  - Type 2 diabetes mellitus [Unknown]
  - Glomerulonephritis membranous [Unknown]
  - Urinary occult blood [Unknown]
  - Blood albumin decreased [Unknown]
  - Diabetic nephropathy [Unknown]
  - Oedema peripheral [Unknown]
  - Protein urine [Unknown]
